FAERS Safety Report 5697454-X (Version None)
Quarter: 2008Q2

REPORT INFORMATION
  Report Type: 
  Country: None (occurrence: None)
  Receive Date: 20080407
  Receipt Date: 20080402
  Transmission Date: 20081010
  Serious: Yes (Death, Other)
  Sender: FDA-Public Use
  Company Number: PHHY2008JP04557

PATIENT
  Age: 49 Year
  Sex: Female

DRUGS (7)
  1. CYCLOSPORINE [Suspect]
     Indication: INTERSTITIAL LUNG DISEASE
     Dosage: 140 MG/ DAY
     Route: 048
  2. CYCLOSPORINE [Suspect]
     Dosage: 180 MG/ DAY
     Route: 048
  3. IMMUNE GLOBULIN INTRAVENOUS (HUMAN) [Concomitant]
  4. PREDNISOLONE [Concomitant]
     Dosage: 30 MG/ DAY
     Route: 048
  5. CYCLOPHOSPHAMIDE [Concomitant]
  6. METHYLPREDNISOLONE [Concomitant]
     Dosage: 1000 MG/D
  7. SIVELESTAT [Concomitant]
     Dosage: 200 MG/D

REACTIONS (4)
  - INTERSTITIAL LUNG DISEASE [None]
  - LIVER DISORDER [None]
  - PNEUMOMEDIASTINUM [None]
  - SUBCUTANEOUS EMPHYSEMA [None]
